FAERS Safety Report 9660952 (Version 1)
Quarter: 2013Q4

REPORT INFORMATION
  Report Type: Spontaneous
  Country: US (occurrence: US)
  Receive Date: 20131031
  Receipt Date: 20131031
  Transmission Date: 20140711
  Serious: Yes (Other)
  Sender: FDA-Public Use
  Company Number: US-PFIZER INC-2013310772

PATIENT
  Sex: Male

DRUGS (5)
  1. NEURONTIN [Suspect]
     Dosage: 800 MG, UNK
  2. LYRICA [Suspect]
     Dosage: 300
  3. NORVASC [Suspect]
     Dosage: 10
  4. ZOLOFT [Suspect]
     Dosage: 100
  5. LIPITOR [Suspect]
     Dosage: 40 MG, UNK

REACTIONS (1)
  - Cerebrovascular accident [Unknown]
